FAERS Safety Report 24263402 (Version 1)
Quarter: 2024Q3

REPORT INFORMATION
  Report Type: Spontaneous
  Country: CH (occurrence: CH)
  Receive Date: 20240829
  Receipt Date: 20240829
  Transmission Date: 20241016
  Serious: Yes (Hospitalization, Other)
  Sender: SANOFI AVENTIS
  Company Number: None

PATIENT
  Age: 21 Year
  Sex: Female

DRUGS (3)
  1. IBUPROFEN [Suspect]
     Active Substance: IBUPROFEN
     Indication: Suicide attempt
     Dosage: 10 G
     Route: 048
     Dates: start: 20231009, end: 20231009
  2. NOVALGIN (METAMIZOLE SODIUM) [Suspect]
     Active Substance: METAMIZOLE SODIUM
     Indication: Suicide attempt
     Dosage: 5 G
     Route: 048
     Dates: start: 20231009, end: 20231009
  3. ZOLPIDEM TARTRATE [Suspect]
     Active Substance: ZOLPIDEM TARTRATE
     Indication: Suicide attempt
     Dosage: 160 MG
     Route: 048
     Dates: start: 20231009, end: 20231009

REACTIONS (9)
  - Somnolence [Recovered/Resolved]
  - Leukocytosis [Unknown]
  - Mydriasis [Recovering/Resolving]
  - Toxicity to various agents [Recovering/Resolving]
  - Hypokalaemia [Unknown]
  - Alanine aminotransferase increased [Unknown]
  - Tachycardia [Recovering/Resolving]
  - Vomiting [Recovering/Resolving]
  - Intentional overdose [Recovering/Resolving]

NARRATIVE: CASE EVENT DATE: 20231009
